FAERS Safety Report 7972120-6 (Version None)
Quarter: 2011Q4

REPORT INFORMATION
  Report Type: 
  Country: None (occurrence: None)
  Receive Date: 20111212
  Receipt Date: 20111205
  Transmission Date: 20120403
  Serious: Yes (Other)
  Sender: FDA-Public Use
  Company Number: US-RB-021019-11

PATIENT
  Age: 27 Year
  Sex: Female

DRUGS (5)
  1. TOBACCO [Suspect]
     Indication: TOBACCO USER
     Dosage: DAILY
     Route: 065
  2. SUBUTEX [Suspect]
     Indication: DRUG DEPENDENCE
     Dosage: PRESCRIBED 16 MG DAILY TAKING 8 MG
     Route: 060
     Dates: start: 20110101, end: 20110806
  3. SUBOXONE [Suspect]
     Indication: DRUG DEPENDENCE
     Route: 060
     Dates: start: 20100101, end: 20110101
  4. SUBUTEX [Suspect]
     Dosage: TAPERING DOSE TO 1 MG
     Route: 060
     Dates: start: 20110101, end: 20110806
  5. VITAMIN AND MINERAL PRENATAL SUPPLEMENT W/ FOLIC ACID CAP [Concomitant]
     Indication: PREGNANCY
     Dosage: DAILY
     Route: 065

REACTIONS (8)
  - HYPERTENSION [None]
  - STRESS [None]
  - HAEMORRHAGE [None]
  - MATERNAL EXPOSURE DURING PREGNANCY [None]
  - PREMATURE SEPARATION OF PLACENTA [None]
  - VOMITING [None]
  - UNDERDOSE [None]
  - WRONG TECHNIQUE IN DRUG USAGE PROCESS [None]
